FAERS Safety Report 24056716 (Version 7)
Quarter: 2025Q4

REPORT INFORMATION
  Report Type: Spontaneous
  Country: US (occurrence: US)
  Receive Date: 20240705
  Receipt Date: 20251104
  Transmission Date: 20260118
  Serious: Yes (Other)
  Sender: AMGEN
  Company Number: US-AMGEN-USASP2024129291

PATIENT
  Age: 34 Year
  Sex: Female

DRUGS (17)
  1. OTEZLA [Suspect]
     Active Substance: APREMILAST
     Indication: Behcet^s syndrome
     Dosage: 30 MILLIGRAM, BID (2 TIMES EVERY DAY APPROXIMATELY 12 HOURS APART)
     Route: 048
     Dates: start: 20240702
  2. OTEZLA [Suspect]
     Active Substance: APREMILAST
     Indication: Axial spondyloarthritis
     Dosage: 30 MILLIGRAM, BID (2 TIMES EVERY DAY APPROXIMATELY 12 HOURS APART)
     Route: 048
  3. ERRIN [Concomitant]
     Active Substance: NORETHINDRONE
     Dosage: 0.35 MILLIGRAM
     Route: 065
  4. Bd posiflush [Concomitant]
     Dosage: UNK
  5. COLCHICINE [Concomitant]
     Active Substance: COLCHICINE
     Dosage: 0.6 MILLIGRAM
  6. DEXAMETHASONE SODIUM PHOSPHATE [Concomitant]
     Active Substance: DEXAMETHASONE SODIUM PHOSPHATE
     Dosage: 10MG/ML
  7. DEXAMETHASONE SODIUM PHOSPHATE [Concomitant]
     Active Substance: DEXAMETHASONE SODIUM PHOSPHATE
     Dosage: 50MG/ML
  8. DIPHENHYDRAMINE [Concomitant]
     Active Substance: DIPHENHYDRAMINE
     Dosage: 50MG/ML
  9. GAMMAKED [Concomitant]
     Active Substance: HUMAN IMMUNOGLOBULIN G
     Dosage: 10GM/100
  10. HUMIRA [Concomitant]
     Active Substance: ADALIMUMAB
     Dosage: 40MG/0.4ML PEN (2=2)-
  11. JENCYCLA [Concomitant]
     Active Substance: NORETHINDRONE
     Dosage: 0.35 MILLIGRAM
  12. SIMLANDI [Concomitant]
     Active Substance: ADALIMUMAB-RYVK
     Dosage: 40 MG/0.4ML PEN (2=2)
  13. EUCRISA [Concomitant]
     Active Substance: CRISABOROLE
     Dosage: UNK
  14. GAMMAGARD [Concomitant]
     Active Substance: HUMAN IMMUNOGLOBULIN G
     Dosage: 30 GM/300
  15. LABETALOL [Concomitant]
     Active Substance: LABETALOL
     Dosage: 200 MILLIGRAM
  16. TRIAMCINOLONE ACETONIDE [Concomitant]
     Active Substance: TRIAMCINOLONE ACETONIDE
     Dosage: 40 MILLIGRAM/ML
  17. CLONIDINE [Concomitant]
     Active Substance: CLONIDINE
     Dosage: 0.1 MILLIGRAM

REACTIONS (4)
  - Behcet^s syndrome [Recovering/Resolving]
  - Ankylosing spondylitis [Not Recovered/Not Resolved]
  - Upper respiratory tract infection [Unknown]
  - Therapy non-responder [Unknown]

NARRATIVE: CASE EVENT DATE: 20251018
